FAERS Safety Report 7067572-2 (Version None)
Quarter: 2010Q4

REPORT INFORMATION
  Report Type: 
  Country: None (occurrence: None)
  Receive Date: 20101028
  Receipt Date: 20101026
  Transmission Date: 20110411
  Serious: Yes (Life-Threatening, Hospitalization)
  Sender: FDA-Public Use
  Company Number: FR-BRISTOL-MYERS SQUIBB COMPANY-15352719

PATIENT
  Age: 25 Year
  Sex: Male

DRUGS (2)
  1. ABILIFY [Suspect]
     Route: 048
  2. ZYPREXA [Suspect]

REACTIONS (2)
  - PERSECUTORY DELUSION [None]
  - SUICIDE ATTEMPT [None]
